FAERS Safety Report 6232725-X (Version None)
Quarter: 2009Q2

REPORT INFORMATION
  Report Type: 
  Country: None (occurrence: None)
  Receive Date: 20090617
  Receipt Date: 20090610
  Transmission Date: 20091009
  Serious: Yes (Hospitalization)
  Sender: FDA-Public Use
  Company Number: CA-NOVOPROD-279631

PATIENT
  Sex: Female
  Weight: 86.3 kg

DRUGS (10)
  1. INSULIN DETEMIR PENFILL [Suspect]
     Indication: TYPE 1 DIABETES MELLITUS
     Dosage: UNK, UNK
     Route: 058
     Dates: start: 20080319
  2. INSULIN DETEMIR PENFILL [Suspect]
     Dosage: 28 IU, QD
     Route: 058
     Dates: start: 20080817, end: 20080915
  3. INSULIN DETEMIR PENFILL [Suspect]
     Dates: start: 20080917
  4. NOVORAPID PENFILL 3.0 ML [Suspect]
     Indication: TYPE 1 DIABETES MELLITUS
     Route: 058
     Dates: start: 20080319
  5. NOVORAPID PENFILL 3.0 ML [Suspect]
     Dosage: 25 IU, QD
     Route: 058
     Dates: start: 20080817, end: 20080916
  6. NOVORAPID PENFILL 3.0 ML [Suspect]
     Dates: start: 20080917
  7. SYNTHROID [Concomitant]
     Dosage: .1 MG, QD
     Route: 048
     Dates: start: 20060411
  8. MATERNA                            /01700601/ [Concomitant]
     Dosage: 1 TAB, QD
     Route: 048
     Dates: start: 20080521
  9. MATERNA                            /01700601/ [Concomitant]
     Dates: start: 20080817
  10. MATERNA                            /01700601/ [Concomitant]
     Dates: start: 20080817

REACTIONS (3)
  - DIABETIC KETOACIDOSIS [None]
  - GASTROENTERITIS [None]
  - PREMATURE LABOUR [None]
